FAERS Safety Report 8816263 (Version 2)
Quarter: 2012Q4

REPORT INFORMATION
  Report Type: 
  Country: CA (occurrence: CA)
  Receive Date: 20120929
  Receipt Date: 20121031
  Transmission Date: 20130627
  Serious: Yes (Hospitalization)
  Sender: FDA-Public Use
  Company Number: PHHY2012CA081100

PATIENT

DRUGS (2)
  1. ENTACAPONE [Suspect]
     Indication: PARKINSON^S DISEASE
  2. LEVODOPA [Suspect]
     Indication: PARKINSON^S DISEASE

REACTIONS (8)
  - Depressed level of consciousness [Unknown]
  - Hyponatraemia [Unknown]
  - Cognitive disorder [Unknown]
  - Dehydration [Unknown]
  - Dyskinesia [Unknown]
  - Constipation [Unknown]
  - Nausea [Unknown]
  - Immobile [None]
